FAERS Safety Report 10540348 (Version 1)
Quarter: 2014Q4

REPORT INFORMATION
  Report Type: Spontaneous
  Country: US (occurrence: None)
  Receive Date: 20141007
  Receipt Date: 20141007
  Transmission Date: 20150529
  Serious: Yes (Other)
  Sender: FDA-Public Use
  Company Number: 2000872

PATIENT
  Age: 58 Year
  Sex: Male
  Weight: 124.09 kg

DRUGS (5)
  1. LEUCOVORIN /00566701/ [Concomitant]
     Active Substance: LEUCOVORIN
  2. DEXAMETHASONE. [Concomitant]
     Active Substance: DEXAMETHASONE
  3. SANCUSO [Concomitant]
     Active Substance: GRANISETRON
  4. 5-FU /00098801/ [Concomitant]
     Active Substance: FLUOROURACIL
  5. OXALIPLATIN INJECTION (OXALIPLATIN) [Suspect]
     Active Substance: OXALIPLATIN
     Indication: COLON CANCER STAGE IV
     Route: 042
     Dates: start: 20131029, end: 20131029

REACTIONS (3)
  - Dyspnoea [None]
  - Pruritus generalised [None]
  - Flushing [None]

NARRATIVE: CASE EVENT DATE: 20131029
